FAERS Safety Report 25330905 (Version 1)
Quarter: 2025Q2

REPORT INFORMATION
  Report Type: Spontaneous
  Country: DE (occurrence: DE)
  Receive Date: 20250519
  Receipt Date: 20250519
  Transmission Date: 20250716
  Serious: Yes (Other)
  Sender: SANDOZ
  Company Number: DE-BESINS-2025-01319

PATIENT
  Age: 54 Year
  Sex: Female
  Weight: 59 kg

DRUGS (4)
  1. ESTRADIOL [Suspect]
     Active Substance: ESTRADIOL
     Indication: Product used for unknown indication
     Dosage: 1 DF (ESTRADIOL GEL ON THIGHS)
     Route: 065
     Dates: start: 2025, end: 2025
  2. ESTRADIOL [Suspect]
     Active Substance: ESTRADIOL
     Dosage: 1 DF (ESTRADIOL GEL ON THIGHS)
     Route: 065
     Dates: start: 2025
  3. UTROGESTAN [Suspect]
     Active Substance: PROGESTERONE
     Indication: Product used for unknown indication
     Dosage: 100 MG, QD (100MG PROGESTERONE IN THE EVENING)
     Route: 065
     Dates: start: 2025, end: 2025
  4. UTROGESTAN [Suspect]
     Active Substance: PROGESTERONE
     Dosage: 100 DF, QD (100MG PROGESTERONE IN THE EVENING)
     Route: 065
     Dates: start: 2025

REACTIONS (5)
  - Postmenopausal haemorrhage [Recovered/Resolved]
  - Limb discomfort [Recovered/Resolved]
  - Scar pain [Recovered/Resolved]
  - Middle insomnia [Recovered/Resolved]
  - Breast discomfort [Recovered/Resolved]

NARRATIVE: CASE EVENT DATE: 20250101
